FAERS Safety Report 9807288 (Version 1)
Quarter: 2014Q1

REPORT INFORMATION
  Report Type: Report from Study
  Country: US (occurrence: US)
  Receive Date: 20140110
  Receipt Date: 20140110
  Transmission Date: 20141002
  Serious: Yes (Other)
  Sender: FDA-Public Use
  Company Number: US-ROCHE-1329873

PATIENT
  Sex: Male

DRUGS (3)
  1. XELODA [Suspect]
     Indication: PRODUCT USED FOR UNKNOWN INDICATION
     Dosage: 5 TABS PER DAY
     Route: 065
  2. XELODA [Suspect]
     Dosage: 4 TABS PER DAY
     Route: 065
  3. XELODA [Suspect]
     Dosage: DISCONTINUED
     Route: 065

REACTIONS (1)
  - Neoplasm [Not Recovered/Not Resolved]
